FAERS Safety Report 23924831 (Version 3)
Quarter: 2024Q3

REPORT INFORMATION
  Report Type: Spontaneous
  Country: US (occurrence: US)
  Receive Date: 20240531
  Receipt Date: 20240703
  Transmission Date: 20241016
  Serious: No
  Sender: PFIZER
  Company Number: US-PFIZER INC-PV202400071215

PATIENT
  Age: 31 Year
  Sex: Female
  Weight: 94.785 kg

DRUGS (3)
  1. SOMATROPIN [Suspect]
     Active Substance: SOMATROPIN
     Indication: Hypopituitarism
     Dosage: 0.6 MG, DAILY
     Route: 058
     Dates: start: 20240131
  2. SOMATROPIN [Suspect]
     Active Substance: SOMATROPIN
     Indication: Hypothyroidism
  3. SOMATROPIN [Suspect]
     Active Substance: SOMATROPIN
     Indication: Growth hormone deficiency

REACTIONS (2)
  - Libido decreased [Unknown]
  - Blood oestrogen decreased [Unknown]
